FAERS Safety Report 6433811-1 (Version None)
Quarter: 2009Q4

REPORT INFORMATION
  Report Type: 
  Country: None (occurrence: None)
  Receive Date: 20091106
  Receipt Date: 20091106
  Transmission Date: 20100525
  Serious: Yes (Hospitalization)
  Sender: FDA-Public Use
  Company Number: None

PATIENT
  Age: 63 Year

DRUGS (2)
  1. CLOZAPINE [Suspect]
     Indication: SCHIZOPHRENIA, PARANOID TYPE
     Dosage: 100 MG AT BEDTIME PO
     Route: 048
     Dates: start: 20070201
  2. RISPERIDONE [Suspect]
     Indication: SCHIZOPHRENIA, PARANOID TYPE
     Dosage: 0.5 MG AM PO
     Route: 048
     Dates: start: 20081010

REACTIONS (5)
  - ASTHENIA [None]
  - BLOOD PRESSURE ORTHOSTATIC [None]
  - DIZZINESS [None]
  - PRESYNCOPE [None]
  - VERTIGO POSITIONAL [None]
